FAERS Safety Report 7194032-0 (Version None)
Quarter: 2010Q4

REPORT INFORMATION
  Report Type: 
  Country: None (occurrence: None)
  Receive Date: 20101223
  Receipt Date: 20101221
  Transmission Date: 20110411
  Serious: Yes (Other)
  Sender: FDA-Public Use
  Company Number: CA-US-EMD SERONO, INC.-230018J10CAN

PATIENT
  Sex: Male

DRUGS (18)
  1. REBIF [Suspect]
     Indication: RELAPSING-REMITTING MULTIPLE SCLEROSIS
     Dates: start: 20080301, end: 20091213
  2. REBIF [Suspect]
     Dates: start: 20010302, end: 20070801
  3. REBIF [Suspect]
     Dates: start: 20080101, end: 20080215
  4. TYLENOL W/ CODEINE NO. 3 [Concomitant]
     Indication: PREMEDICATION
  5. H1N1 VACCINATION [Concomitant]
     Dates: start: 20091222, end: 20091222
  6. CYMBALTA [Concomitant]
  7. PAXIL [Concomitant]
  8. CLONAZEPAM [Concomitant]
  9. PREVACID [Concomitant]
  10. GABAPENTIN [Concomitant]
  11. VITAMIN D [Concomitant]
  12. NOVO-BETAHISTINE [Concomitant]
  13. OXYBUTYNIN [Concomitant]
  14. LYRICA [Concomitant]
  15. CERC [Concomitant]
  16. GRAVOL TAB [Concomitant]
  17. ATARAC [Concomitant]
     Indication: PRURITUS
  18. FLU SHOT [Concomitant]
     Dates: start: 20101125, end: 20101125

REACTIONS (29)
  - ARTHROPOD BITE [None]
  - DEFAECATION URGENCY [None]
  - DEPRESSION [None]
  - DERMAL CYST [None]
  - DIARRHOEA [None]
  - DIZZINESS [None]
  - FATIGUE [None]
  - FEELING HOT [None]
  - FREQUENT BOWEL MOVEMENTS [None]
  - HAEMATOCHEZIA [None]
  - HAEMORRHOIDS [None]
  - HEADACHE [None]
  - HYPERHIDROSIS [None]
  - HYPOAESTHESIA [None]
  - INFLUENZA [None]
  - INFLUENZA LIKE ILLNESS [None]
  - INJECTION SITE REACTION [None]
  - MALAISE [None]
  - MOBILITY DECREASED [None]
  - MUSCULAR WEAKNESS [None]
  - NASOPHARYNGITIS [None]
  - NAUSEA [None]
  - ORAL HERPES [None]
  - PAIN [None]
  - PAIN IN EXTREMITY [None]
  - PRURITUS [None]
  - ROAD TRAFFIC ACCIDENT [None]
  - SUICIDAL IDEATION [None]
  - VOMITING [None]
